FAERS Safety Report 9988759 (Version 1)
Quarter: 2013Q4

REPORT INFORMATION
  Report Type: Spontaneous
  Country: CZ (occurrence: None)
  Receive Date: 20131016
  Receipt Date: 20131016
  Transmission Date: 20140711
  Serious: Yes (Other)
  Sender: FDA-Public Use
  Company Number: EUS-2011-00509

PATIENT
  Sex: 0

DRUGS (1)
  1. ASPARGINASE [Suspect]

REACTIONS (2)
  - Deep vein thrombosis [None]
  - Infection [None]
